FAERS Safety Report 11395369 (Version 3)
Quarter: 2015Q3

REPORT INFORMATION
  Report Type: Spontaneous
  Country: GB (occurrence: GB)
  Receive Date: 20150819
  Receipt Date: 20150911
  Transmission Date: 20151125
  Serious: Yes (Other)
  Sender: FDA-Public Use
  Company Number: GB-BAYER-2015-397102

PATIENT
  Age: 22 Year
  Sex: Female

DRUGS (5)
  1. NITROFURANTOIN. [Concomitant]
     Active Substance: NITROFURANTOIN
     Indication: PYELONEPHRITIS
     Dosage: UNK
     Dates: start: 20150726, end: 201507
  2. TRIMETHOPRIM. [Concomitant]
     Active Substance: TRIMETHOPRIM
     Indication: PYELONEPHRITIS
     Dosage: UNK
     Dates: start: 20150726
  3. CIPROFLOXACIN MONOHYDROCHLORIDE [Suspect]
     Active Substance: CIPROFLOXACIN
     Indication: PYELONEPHRITIS
     Dosage: 500 MG, UNK
     Route: 048
     Dates: start: 20150726, end: 20150729
  4. NITROFURANTOIN. [Concomitant]
     Active Substance: NITROFURANTOIN
     Indication: URINARY TRACT INFECTION
  5. TRIMETHOPRIM. [Concomitant]
     Active Substance: TRIMETHOPRIM
     Indication: URINARY TRACT INFECTION

REACTIONS (7)
  - Sensory disturbance [Unknown]
  - Pain [Unknown]
  - Paraesthesia [Unknown]
  - Drug ineffective [Unknown]
  - Muscular weakness [Unknown]
  - Acute polyneuropathy [Unknown]
  - Burning sensation [Unknown]
